FAERS Safety Report 7031993-4 (Version None)
Quarter: 2010Q4

REPORT INFORMATION
  Report Type: 
  Country: None (occurrence: None)
  Receive Date: 20101005
  Receipt Date: 20100922
  Transmission Date: 20110411
  Serious: Yes (Hospitalization)
  Sender: FDA-Public Use
  Company Number: TUK2010A00262

PATIENT
  Age: 69 Year
  Sex: Male

DRUGS (4)
  1. ACTOS [Suspect]
     Indication: PRODUCT USED FOR UNKNOWN INDICATION
     Dosage: 15 MG (15 MG)
     Dates: start: 20100401, end: 20100901
  2. GLICLAZIDE (GLICLAZIDE) [Concomitant]
  3. METFORMIN HCL [Concomitant]
  4. LISINOPRIL [Concomitant]

REACTIONS (4)
  - AMNESIA [None]
  - APPARENT DEATH [None]
  - DIARRHOEA [None]
  - WEIGHT DECREASED [None]
